FAERS Safety Report 4280757-3 (Version None)
Quarter: 2004Q1

REPORT INFORMATION
  Report Type: 
  Country: None (occurrence: None)
  Receive Date: 20040127
  Receipt Date: 20040120
  Transmission Date: 20041129
  Serious: Yes (Death)
  Sender: FDA-Public Use
  Company Number: 2004195106AR

PATIENT
  Age: 74 Year
  Sex: Male

DRUGS (1)
  1. ALDACTONE [Suspect]
     Indication: CARDIAC FAILURE
     Dosage: 25 MG, QD, ORAL
     Route: 048
     Dates: start: 20031215, end: 20031220

REACTIONS (1)
  - CARDIO-RESPIRATORY ARREST [None]
